FAERS Safety Report 4323000-9 (Version None)
Quarter: 2004Q1

REPORT INFORMATION
  Report Type: 
  Country: None (occurrence: None)
  Receive Date: 20040322
  Receipt Date: 20040310
  Transmission Date: 20041129
  Serious: Yes (Hospitalization)
  Sender: FDA-Public Use
  Company Number: MK200403-0112-1

PATIENT
  Age: 24 Year
  Sex: Male

DRUGS (2)
  1. ANAFRANIL [Suspect]
     Dosage: 20MG BID
     Dates: start: 20031130, end: 20031203
  2. NEURONTIN [Concomitant]

REACTIONS (2)
  - AGITATION [None]
  - DISINHIBITION [None]
